FAERS Safety Report 4446302-4 (Version None)
Quarter: 2004Q3

REPORT INFORMATION
  Report Type: 
  Country: None (occurrence: None)
  Receive Date: 20040907
  Receipt Date: 20040825
  Transmission Date: 20050211
  Serious: No
  Sender: FDA-Public Use
  Company Number: 002510

PATIENT
  Age: 74 Year
  Sex: Male
  Weight: 59 kg

DRUGS (8)
  1. ZIAC [Suspect]
     Indication: HYPERTENSION
     Dosage: 1.00 TABLET, QD, ORAL
     Route: 048
     Dates: start: 19940101
  2. HYDROCHLOROTHIAZIDE [Concomitant]
  3. AVAPRO [Concomitant]
  4. FLOMAX [Concomitant]
  5. PROSCAR [Concomitant]
  6. LUMIGAN (BIMATOPROST) EYE DROPS [Concomitant]
  7. MULTIVITAMIN [Concomitant]
  8. XANAX [Concomitant]

REACTIONS (6)
  - CHILLS [None]
  - DEHYDRATION [None]
  - PYREXIA [None]
  - URINARY RETENTION [None]
  - URINARY TRACT INFECTION [None]
  - WEIGHT DECREASED [None]
